FAERS Safety Report 15034305 (Version 2)
Quarter: 2018Q3

REPORT INFORMATION
  Report Type: Spontaneous
  Country: US (occurrence: US)
  Receive Date: 20180620
  Receipt Date: 20180716
  Transmission Date: 20181010
  Serious: No
  Sender: FDA-Public Use
  Company Number: US-HORIZON-PEN-0431-2018

PATIENT
  Age: 53 Year
  Sex: Male

DRUGS (5)
  1. LORATADINE. [Concomitant]
     Active Substance: LORATADINE
  2. MOBIC [Concomitant]
     Active Substance: MELOXICAM
  3. PENNSAID [Suspect]
     Active Substance: DICLOFENAC SODIUM
     Indication: ARTHRITIS
     Dosage: 2 PUMPS BID
     Dates: start: 201803
  4. TRAMADOL. [Concomitant]
     Active Substance: TRAMADOL
  5. NASACORT [Concomitant]
     Active Substance: TRIAMCINOLONE ACETONIDE

REACTIONS (6)
  - Rash pruritic [Recovered/Resolved]
  - Skin exfoliation [Recovered/Resolved]
  - Skin hypertrophy [Recovered/Resolved]
  - Skin burning sensation [Recovered/Resolved]
  - Rash pustular [Recovered/Resolved]
  - Skin swelling [Recovered/Resolved]
